FAERS Safety Report 24974445 (Version 1)
Quarter: 2025Q1

REPORT INFORMATION
  Report Type: Spontaneous
  Country: US (occurrence: US)
  Receive Date: 20250217
  Receipt Date: 20250217
  Transmission Date: 20250408
  Serious: Yes (Hospitalization, Other)
  Sender: SPECGX
  Company Number: US-SPECGX-T202500412

PATIENT
  Age: 4 Decade
  Sex: Female

DRUGS (6)
  1. DEXTROAMPHETAMINE SACCHARATE, AMPHETAMINE ASPARTATE, DEXTROAMPHETAMINE [Suspect]
     Active Substance: AMPHETAMINE ASPARTATE\AMPHETAMINE SULFATE\DEXTROAMPHETAMINE SACCHARATE\DEXTROAMPHETAMINE SULFATE
     Indication: Product used for unknown indication
     Dosage: 10 MILLIGRAM, QD
     Route: 065
     Dates: start: 202304
  2. OFATUMUMAB [Suspect]
     Active Substance: OFATUMUMAB
     Indication: Relapsing-remitting multiple sclerosis
     Route: 065
  3. LABETALOL [Concomitant]
     Active Substance: LABETALOL
     Indication: Hypertension
     Dosage: 200 MILLIGRAM, BID
     Route: 065
     Dates: start: 201803
  4. ASCORBIC ACID [Concomitant]
     Active Substance: ASCORBIC ACID
     Indication: Product used for unknown indication
     Dosage: 500 MILLIGRAM, QD
     Route: 065
     Dates: start: 202210
  5. COLLAGEN [Concomitant]
     Active Substance: COLLAGEN
     Indication: Product used for unknown indication
     Route: 065
     Dates: start: 202210
  6. ERGOCALCIFEROL [Concomitant]
     Active Substance: ERGOCALCIFEROL
     Indication: Product used for unknown indication
     Dosage: 1.25 MILLIGRAM, QW
     Route: 065
     Dates: start: 202209

REACTIONS (8)
  - Coronary artery dissection [Unknown]
  - Cardiac arrest [Unknown]
  - Heart failure with preserved ejection fraction [Unknown]
  - Blood pressure increased [Unknown]
  - Implantable defibrillator insertion [Unknown]
  - Endotracheal intubation [Unknown]
  - Resuscitation [Unknown]
  - Catheterisation cardiac [Unknown]
